FAERS Safety Report 8509302-0 (Version None)
Quarter: 2012Q3

REPORT INFORMATION
  Report Type: 
  Country: None (occurrence: None)
  Receive Date: 20120713
  Receipt Date: 20120629
  Transmission Date: 20120928
  Serious: Yes (Hospitalization)
  Sender: FDA-Public Use
  Company Number: JP-ROCHE-1084228

PATIENT
  Age: 74 Year
  Sex: Female

DRUGS (7)
  1. AMLODIPINE BENZENESULFONATE [Concomitant]
     Route: 048
     Dates: start: 20080706
  2. BISOPROLOL FUMARATE [Concomitant]
     Route: 048
  3. LOXOPROFEN [Concomitant]
     Route: 048
  4. MAALOX ADVANCED [Concomitant]
     Route: 048
  5. TORSEMIDE [Suspect]
     Indication: OEDEMA PERIPHERAL
     Route: 048
     Dates: start: 20080706, end: 20120627
  6. ENALAPRIL MALEATE [Concomitant]
     Route: 048
  7. SIMVASTATIN [Concomitant]
     Route: 048

REACTIONS (1)
  - SUDDEN HEARING LOSS [None]
